FAERS Safety Report 6703985-3 (Version None)
Quarter: 2010Q2

REPORT INFORMATION
  Report Type: 
  Country: None (occurrence: None)
  Receive Date: 20100430
  Receipt Date: 20100419
  Transmission Date: 20101027
  Serious: Yes (Hospitalization)
  Sender: FDA-Public Use
  Company Number: US-WATSON-2010-05382

PATIENT
  Sex: Female

DRUGS (3)
  1. BREVICON-28 (WATSON LABORATORIES) [Suspect]
     Indication: CONTRACEPTION
     Dosage: 1 TABLET, QAM
     Route: 048
     Dates: start: 20100402, end: 20100406
  2. BREVICON-28 (WATSON LABORATORIES) [Suspect]
     Indication: PROPHYLAXIS
     Dosage: 1 TABLET, QAM
     Route: 048
     Dates: start: 20070101
  3. LEXAPRO [Concomitant]
     Indication: DRUG USE FOR UNKNOWN INDICATION
     Dosage: UNK
     Route: 065

REACTIONS (7)
  - ABDOMINAL PAIN UPPER [None]
  - ANXIETY [None]
  - DIVERTICULITIS [None]
  - MOVEMENT DISORDER [None]
  - MUSCLE TWITCHING [None]
  - TREMOR [None]
  - VOMITING [None]
